FAERS Safety Report 7674635 (Version 3)
Quarter: 2014Q3

REPORT INFORMATION
  Report Type: Report from Study
  Country: PH (occurrence: PH)
  Receive Date: 20101118
  Receipt Date: 20140721
  Transmission Date: 20150326
  Serious: Yes (Hospitalization)
  Sender: FDA-Public Use
  Company Number: PHHO2010PH17295

PATIENT
  Age: 74 Year
  Sex: Male
  Weight: 60 kg

DRUGS (11)
  1. BLINDED NO TREATMENT RECEIVED [Suspect]
     Active Substance: UNSPECIFIED INGREDIENT
     Indication: CARDIAC FAILURE CHRONIC
     Dosage: DOUBLE BLINDED
     Route: 048
     Dates: start: 20101207, end: 20111017
  2. BLINDED LCZ696 [Suspect]
     Active Substance: INVESTIGATIONAL PRODUCT
     Dosage: DOUBLE BLINDED
     Route: 048
     Dates: start: 20111021
  3. LCZ696 [Suspect]
     Active Substance: INVESTIGATIONAL PRODUCT
     Indication: CARDIAC FAILURE CHRONIC
     Dosage: 100 MG, BID
     Route: 048
     Dates: start: 20101109, end: 20101112
  4. BLINDED NO TREATMENT RECEIVED [Suspect]
     Active Substance: UNSPECIFIED INGREDIENT
     Dosage: DOUBLE BLINDED
     Route: 048
     Dates: start: 20111021
  5. LCZ696 [Suspect]
     Active Substance: INVESTIGATIONAL PRODUCT
     Dosage: UNK
     Route: 048
     Dates: start: 20101114
  6. BLINDED ENALAPRIL [Suspect]
     Active Substance: ENALAPRIL
     Indication: CARDIAC FAILURE CHRONIC
     Dosage: DOUBLE BLINDED
     Route: 048
     Dates: start: 20101207, end: 20111017
  7. BLINDED LCZ696 [Suspect]
     Active Substance: INVESTIGATIONAL PRODUCT
     Indication: CARDIAC FAILURE CHRONIC
     Dosage: DOUBLE BLINDED
     Route: 048
     Dates: start: 20101207, end: 20111017
  8. BLINDED LCZ696 [Suspect]
     Active Substance: INVESTIGATIONAL PRODUCT
     Dosage: DOUBLE BLINDED
     Route: 048
     Dates: start: 20111021
  9. BLINDED LCZ696 [Suspect]
     Active Substance: INVESTIGATIONAL PRODUCT
     Indication: CARDIAC FAILURE CHRONIC
     Dosage: DOUBLE BLINDED
     Route: 048
     Dates: start: 20101207, end: 20111017
  10. BLINDED ENALAPRIL [Suspect]
     Active Substance: ENALAPRIL
     Dosage: DOUBLE BLINDED
     Route: 048
     Dates: start: 20111021
  11. COMPARATOR ENALAPRIL [Suspect]
     Active Substance: ENALAPRIL
     Route: 048
     Dates: start: 20101012, end: 20101207

REACTIONS (5)
  - Chest discomfort [Recovered/Resolved]
  - Hyperhidrosis [Recovered/Resolved]
  - Concomitant disease progression [Recovered/Resolved]
  - Atrial fibrillation [Recovered/Resolved]
  - Hypocalcaemia [Recovered/Resolved]

NARRATIVE: CASE EVENT DATE: 20101113
